FAERS Safety Report 24205787 (Version 1)
Quarter: 2024Q3

REPORT INFORMATION
  Report Type: Report from Study
  Country: US (occurrence: US)
  Receive Date: 20240813
  Receipt Date: 20240813
  Transmission Date: 20241017
  Serious: Yes (Other)
  Sender: BAYER
  Company Number: US-BAYER-2024A114467

PATIENT
  Age: 70 Year
  Sex: Male

DRUGS (1)
  1. VARDENAFIL [Suspect]
     Active Substance: VARDENAFIL HYDROCHLORIDE

REACTIONS (1)
  - Erectile dysfunction [None]
